FAERS Safety Report 4416702-7 (Version None)
Quarter: 2004Q2

REPORT INFORMATION
  Report Type: 
  Country: None (occurrence: None)
  Receive Date: 20040630
  Receipt Date: 20030702
  Transmission Date: 20050107
  Serious: Yes (Life-Threatening, Hospitalization, Other)
  Sender: FDA-Public Use
  Company Number: WAES 0307USA00285

PATIENT
  Age: 62 Year
  Sex: Female
  Weight: 70.7611 kg

DRUGS (2)
  1. HYZAAR [Suspect]
     Indication: HYPERTENSION
     Dosage: 50/12.5 MG/DAILY/PO
     Route: 048
     Dates: start: 20030615, end: 20030623
  2. HYZAAR [Suspect]
     Indication: HYPERTENSION
     Dosage: 100/25 MG/DAILY/PO
     Route: 048
     Dates: start: 20030624, end: 20030628

REACTIONS (3)
  - DRUG INEFFECTIVE [None]
  - HYPOKALAEMIA [None]
  - HYPONATRAEMIA [None]
